FAERS Safety Report 24222329 (Version 3)
Quarter: 2024Q3

REPORT INFORMATION
  Report Type: Report from Study
  Country: US (occurrence: US)
  Receive Date: 20240819
  Receipt Date: 20240926
  Transmission Date: 20241016
  Serious: Yes (Hospitalization, Other)
  Sender: BAYER
  Company Number: US-BAYER-2024A116286

PATIENT
  Age: 74 Year
  Sex: Female
  Weight: 55.329 kg

DRUGS (10)
  1. ADEMPAS [Suspect]
     Active Substance: RIOCIGUAT
     Indication: Pulmonary arterial hypertension
     Dosage: UNK
  2. ADEMPAS [Suspect]
     Active Substance: RIOCIGUAT
     Indication: Pulmonary arterial hypertension
     Dosage: 1.5 MG, TID
     Route: 048
     Dates: start: 202403
  3. ADEMPAS [Suspect]
     Active Substance: RIOCIGUAT
     Indication: Pulmonary arterial hypertension
     Dosage: 1 MG, TID
     Route: 048
     Dates: start: 202408
  4. OPSUMIT [Concomitant]
     Active Substance: MACITENTAN
  5. TYVASO [Concomitant]
     Active Substance: TREPROSTINIL
     Indication: Pulmonary arterial hypertension
     Dosage: 54 ?G, QID
     Dates: start: 202403
  6. OFEV [Concomitant]
     Active Substance: NINTEDANIB
     Indication: Pulmonary fibrosis
  7. DOXYCYCLINE [Concomitant]
     Active Substance: DOXYCYCLINE\DOXYCYCLINE HYCLATE
     Dosage: UNK
     Dates: start: 202408
  8. VITAMIN D3 [Concomitant]
     Active Substance: CHOLECALCIFEROL
     Dosage: UNK
     Dates: start: 2024
  9. VITAMIN K2 (MK 7) WITH NATTOKINASE [Concomitant]
     Dosage: UNK
     Dates: start: 2024
  10. CALCIUM [Concomitant]
     Active Substance: CALCIUM
     Dosage: UNK
     Dates: start: 2024

REACTIONS (11)
  - Hypotension [None]
  - Loss of consciousness [Recovered/Resolved]
  - Syncope [None]
  - Osteopenia [None]
  - Respiration abnormal [Recovered/Resolved]
  - Abnormal loss of weight [Not Recovered/Not Resolved]
  - Dizziness [Recovered/Resolved]
  - Chest discomfort [None]
  - Dysgeusia [None]
  - Gastrooesophageal reflux disease [None]
  - Product dose omission issue [None]

NARRATIVE: CASE EVENT DATE: 20240101
